FAERS Safety Report 7606122-6 (Version None)
Quarter: 2011Q3

REPORT INFORMATION
  Report Type: 
  Country: None (occurrence: None)
  Receive Date: 20110705
  Receipt Date: 20110622
  Transmission Date: 20111222
  Serious: Yes (Death, Hospitalization)
  Sender: FDA-Public Use
  Company Number: 2011NUEUSA00016

PATIENT
  Age: 65 Year
  Sex: Male
  Weight: 59 kg

DRUGS (12)
  1. CELEBREX [Concomitant]
  2. PEPCID/00706001/(FAMOTIDINE) [Concomitant]
  3. LANTUS [Concomitant]
  4. PROVENTIL /0013501 (SALBUTAMOL) [Concomitant]
  5. LOVENOX [Concomitant]
  6. NOVOLOG [Concomitant]
  7. MUCOMYST /00082801/(ACETYLCYSTEINE) [Concomitant]
  8. ZYLOPRIM [Concomitant]
  9. COZAAR [Concomitant]
  10. NUEDEXTA [Suspect]
     Indication: PRODUCT USED FOR UNKNOWN INDICATION
     Dates: start: 20110401
  11. SINEMET [Concomitant]
  12. OCEAN NASAL (SODIUM CHLORIDE) SPRAY [Concomitant]

REACTIONS (7)
  - ACUTE RESPIRATORY FAILURE [None]
  - SUPRANUCLEAR PALSY [None]
  - DEHYDRATION [None]
  - HYPERNATRAEMIA [None]
  - PNEUMONIA ASPIRATION [None]
  - UPPER GASTROINTESTINAL HAEMORRHAGE [None]
  - HAEMORRHAGIC ANAEMIA [None]
